FAERS Safety Report 9775565 (Version 1)
Quarter: 2013Q4

REPORT INFORMATION
  Report Type: Spontaneous
  Country: US (occurrence: US)
  Receive Date: 20131220
  Receipt Date: 20131220
  Transmission Date: 20140711
  Serious: No
  Sender: FDA-Public Use
  Company Number: US-BAYER-2013-155837

PATIENT
  Age: 50 Year
  Sex: Female
  Weight: 113 kg

DRUGS (4)
  1. ALEVE CAPLET [Suspect]
     Indication: ANALGESIC THERAPY
     Dosage: UNK
  2. ALEVE CAPLET [Suspect]
     Indication: ANALGESIC THERAPY
     Dosage: 1 DF, OTHER FREQUENCY
     Route: 048
     Dates: start: 20131218
  3. OMEPRAZOLE [Concomitant]
  4. DIOVAN [Concomitant]

REACTIONS (2)
  - Drug ineffective [None]
  - Extra dose administered [None]
